FAERS Safety Report 16326743 (Version 1)
Quarter: 2019Q2

REPORT INFORMATION
  Report Type: Report from Study
  Country: KR (occurrence: KR)
  Receive Date: 20190517
  Receipt Date: 20190517
  Transmission Date: 20190711
  Serious: Yes (Hospitalization, Other)
  Sender: FDA-Public Use
  Company Number: KR-JNJFOC-20190512806

PATIENT
  Sex: Female

DRUGS (3)
  1. DOXORUBICIN HYDROCHLORIDE. [Suspect]
     Active Substance: DOXORUBICIN HYDROCHLORIDE
     Indication: BREAST CANCER
     Route: 042
  2. CYCLOPHOSPHAMIDE. [Suspect]
     Active Substance: CYCLOPHOSPHAMIDE
     Indication: BREAST CANCER
     Route: 042
  3. PEGTEOGRASTIM [Suspect]
     Active Substance: PEGTEOGRASTIM
     Indication: BREAST CANCER
     Route: 058

REACTIONS (28)
  - Vomiting [Unknown]
  - Dyspepsia [Unknown]
  - Anaemia [Unknown]
  - Thrombocytopenia [Unknown]
  - Oesophageal candidiasis [Unknown]
  - Nausea [Unknown]
  - Abdominal pain [Unknown]
  - Headache [Unknown]
  - Lymphopenia [Unknown]
  - Pneumonia [Unknown]
  - Asthenia [Unknown]
  - Bone pain [Unknown]
  - Alopecia [Unknown]
  - Constipation [Unknown]
  - Cough [Unknown]
  - Insomnia [Unknown]
  - Stomatitis [Unknown]
  - Enteritis [Unknown]
  - Myalgia [Unknown]
  - Transaminases increased [Unknown]
  - Cystitis [Unknown]
  - Neutropenia [Unknown]
  - Wound infection [Unknown]
  - Decreased appetite [Unknown]
  - Dizziness [Unknown]
  - Febrile neutropenia [Unknown]
  - Diarrhoea [Unknown]
  - Mucosal inflammation [Unknown]
